FAERS Safety Report 23311577 (Version 4)
Quarter: 2024Q1

REPORT INFORMATION
  Report Type: Spontaneous
  Country: US (occurrence: US)
  Receive Date: 20231219
  Receipt Date: 20240222
  Transmission Date: 20240410
  Serious: No
  Sender: FDA-Public Use
  Company Number: US-JNJFOC-20231211532

PATIENT
  Age: 54 Year
  Sex: Male
  Weight: 154.36 kg

DRUGS (1)
  1. TREMFYA [Suspect]
     Active Substance: GUSELKUMAB
     Indication: Psoriasis
     Route: 065

REACTIONS (7)
  - Device malfunction [Unknown]
  - Accidental exposure to product [Unknown]
  - Drug delivery system malfunction [Unknown]
  - Needle issue [Unknown]
  - Product quality issue [Unknown]
  - Product label issue [Unknown]
  - Product dose omission issue [Unknown]
